FAERS Safety Report 21143690 (Version 13)
Quarter: 2025Q2

REPORT INFORMATION
  Report Type: Report from Study
  Country: US (occurrence: US)
  Receive Date: 20220728
  Receipt Date: 20250401
  Transmission Date: 20250716
  Serious: Yes (Hospitalization, Other)
  Sender: TAKEDA
  Company Number: US-TAKEDA-2022TUS031138

PATIENT
  Sex: Male

DRUGS (18)
  1. PONATINIB [Suspect]
     Active Substance: PONATINIB
     Indication: Chronic myeloid leukaemia
     Dosage: 30 MILLIGRAM, QD
  2. PONATINIB [Suspect]
     Active Substance: PONATINIB
     Indication: Acute lymphocytic leukaemia
     Dosage: 15 MILLIGRAM, QD
  3. PONATINIB [Suspect]
     Active Substance: PONATINIB
     Indication: Acute leukaemia
     Dosage: 45 MILLIGRAM, QD
  4. PONATINIB [Suspect]
     Active Substance: PONATINIB
     Dosage: 15 MILLIGRAM, QD
  5. PONATINIB [Suspect]
     Active Substance: PONATINIB
     Dosage: 15 MILLIGRAM, QD
  6. PONATINIB [Suspect]
     Active Substance: PONATINIB
     Dosage: 15 MILLIGRAM, QD
  7. PONATINIB [Suspect]
     Active Substance: PONATINIB
     Dosage: 15 MILLIGRAM, QOD
  8. LEVAQUIN [Concomitant]
     Active Substance: LEVOFLOXACIN
  9. FLUCONAZOLE [Concomitant]
     Active Substance: FLUCONAZOLE
  10. NEXIUM [Concomitant]
     Active Substance: ESOMEPRAZOLE MAGNESIUM
  11. LORATADINE [Concomitant]
     Active Substance: LORATADINE
  12. BLINCYTO [Concomitant]
     Active Substance: BLINATUMOMAB
  13. BACTRIM [Concomitant]
     Active Substance: SULFAMETHOXAZOLE\TRIMETHOPRIM
  14. ACYCLOVIR [Concomitant]
     Active Substance: ACYCLOVIR
  15. LEVOTHYROXINE SODIUM [Concomitant]
     Active Substance: LEVOTHYROXINE SODIUM
  16. FOLIC ACID [Concomitant]
     Active Substance: FOLIC ACID
  17. PREDNISONE [Concomitant]
     Active Substance: PREDNISONE
  18. POSACONAZOLE [Concomitant]
     Active Substance: POSACONAZOLE

REACTIONS (15)
  - Full blood count decreased [Unknown]
  - Chronic myeloid leukaemia recurrent [Unknown]
  - Migraine [Unknown]
  - Liver injury [Unknown]
  - Neutrophil count decreased [Unknown]
  - Pyrexia [Unknown]
  - Fatigue [Unknown]
  - Off label use [Unknown]
  - Liver function test increased [Unknown]
  - Liver disorder [Unknown]
  - Product dose omission issue [Unknown]
  - Limb injury [Unknown]
  - Visual impairment [Unknown]
  - Hepatic enzyme increased [Unknown]
  - Headache [Unknown]
